FAERS Safety Report 7301537-8 (Version None)
Quarter: 2011Q1

REPORT INFORMATION
  Report Type: 
  Country: None (occurrence: None)
  Receive Date: 20110218
  Receipt Date: 20101222
  Transmission Date: 20110831
  Serious: No
  Sender: FDA-Public Use
  Company Number: US-BRISTOL-MYERS SQUIBB COMPANY-15456643

PATIENT
  Sex: Female

DRUGS (1)
  1. KENALOG [Suspect]
     Dates: start: 20101217

REACTIONS (4)
  - DYSPEPSIA [None]
  - AGITATION [None]
  - NAUSEA [None]
  - ANXIETY [None]
